FAERS Safety Report 4714474-X (Version None)
Quarter: 2005Q3

REPORT INFORMATION
  Report Type: 
  Country: None (occurrence: None)
  Receive Date: 20050712
  Receipt Date: 20050630
  Transmission Date: 20060218
  Serious: No
  Sender: FDA-Public Use
  Company Number: 11747

PATIENT
  Age: 63 Year
  Sex: Male

DRUGS (4)
  1. CARBOPLATIN [Suspect]
     Indication: ADENOCARCINOMA
     Dosage: 600 MG Q3W; IV
     Route: 042
     Dates: start: 20050421
  2. DEXAMETHASONE [Concomitant]
  3. DOCETAXEL [Concomitant]
  4. ... [Concomitant]

REACTIONS (1)
  - BLISTER [None]
